FAERS Safety Report 8325240-0 (Version None)
Quarter: 2012Q1

REPORT INFORMATION
  Report Type: 
  Country: None (occurrence: None)
  Receive Date: 20120315
  Receipt Date: 20101214
  Transmission Date: 20120608
  Serious: No
  Sender: FDA-Public Use
  Company Number: PHHY2010US78494

PATIENT
  Age: 49 Year
  Sex: Female
  Weight: 55 kg

DRUGS (1)
  1. GILENYA [Suspect]
     Dosage: 0.5 MG QD, ORAL
     Route: 048
     Dates: start: 20090326

REACTIONS (2)
  - STRESS [None]
  - MUSCLE SPASMS [None]
